FAERS Safety Report 10069808 (Version 2)
Quarter: 2014Q2

REPORT INFORMATION
  Report Type: Spontaneous
  Country: US (occurrence: US)
  Receive Date: 20140410
  Receipt Date: 20140616
  Transmission Date: 20141212
  Serious: No
  Sender: FDA-Public Use
  Company Number: US-PFIZER INC-2014098608

PATIENT
  Sex: Female

DRUGS (1)
  1. SILVADENE [Suspect]
     Indication: DERMATITIS ATOPIC
     Dosage: UNK

REACTIONS (7)
  - Off label use [Unknown]
  - Erythema [Unknown]
  - Skin irritation [Unknown]
  - Product odour abnormal [Unknown]
  - Hyperaesthesia [Unknown]
  - Skin disorder [Unknown]
  - Parosmia [Unknown]
